FAERS Safety Report 4942344-0 (Version None)
Quarter: 2006Q1

REPORT INFORMATION
  Report Type: 
  Country: None (occurrence: None)
  Receive Date: 20060313
  Receipt Date: 20060103
  Transmission Date: 20060701
  Serious: Yes (Other)
  Sender: FDA-Public Use
  Company Number: US-GLAXOSMITHKLINE-A0587456A

PATIENT
  Sex: Female

DRUGS (1)
  1. NICORETTE [Suspect]
     Route: 065

REACTIONS (1)
  - DRUG ABUSER [None]
